FAERS Safety Report 6235778-8 (Version None)
Quarter: 2009Q2

REPORT INFORMATION
  Report Type: 
  Country: None (occurrence: None)
  Receive Date: 20090617
  Receipt Date: 20090617
  Transmission Date: 20091009
  Serious: No
  Sender: FDA-Public Use
  Company Number: None

PATIENT
  Age: 48 Year
  Sex: Male
  Weight: 86.1834 kg

DRUGS (1)
  1. ZICAM COLD REMEDY NASAL SPRAY [Suspect]
     Indication: NASOPHARYNGITIS
     Dosage: TWICE A DAY NASAL
     Route: 045
     Dates: start: 20081101, end: 20090130

REACTIONS (1)
  - ANOSMIA [None]
